FAERS Safety Report 4532281-8 (Version None)
Quarter: 2004Q4

REPORT INFORMATION
  Report Type: 
  Country: None (occurrence: None)
  Receive Date: 20041217
  Receipt Date: 20041203
  Transmission Date: 20050328
  Serious: Yes (Other)
  Sender: FDA-Public Use
  Company Number: 2004S1000206

PATIENT
  Sex: Female

DRUGS (1)
  1. SORIATANE [Suspect]
     Dosage: VAG
     Route: 067
     Dates: start: 20040816

REACTIONS (2)
  - DRUG EXPOSURE DURING PREGNANCY [None]
  - TRANSMISSION OF DRUG VIA SEMEN [None]
